FAERS Safety Report 5298882-7 (Version None)
Quarter: 2007Q2

REPORT INFORMATION
  Report Type: 
  Country: None (occurrence: None)
  Receive Date: 20070417
  Receipt Date: 20070406
  Transmission Date: 20071010
  Serious: Yes (Hospitalization)
  Sender: FDA-Public Use
  Company Number: US-AMGEN-US137815

PATIENT
  Sex: Female

DRUGS (8)
  1. PANITUMUMAB [Suspect]
     Indication: COLORECTAL CANCER
     Route: 042
     Dates: start: 20050223, end: 20050506
  2. CALCIUM GLUCONATE [Concomitant]
     Route: 065
  3. COUMADIN [Concomitant]
     Route: 048
  4. GLUCOTROL [Concomitant]
     Route: 048
  5. LISINOPRIL [Concomitant]
     Route: 048
  6. IRON [Concomitant]
     Route: 048
  7. FLOMAX [Concomitant]
     Route: 065
  8. POTASSIUM CHLORIDE [Concomitant]
     Route: 048

REACTIONS (1)
  - CONVULSION [None]
